FAERS Safety Report 8696219 (Version 3)
Quarter: 2012Q4

REPORT INFORMATION
  Report Type: 
  Country: US (occurrence: US)
  Receive Date: 20120801
  Receipt Date: 20121112
  Transmission Date: 20130627
  Serious: Yes (Hospitalization, Other)
  Sender: FDA-Public Use
  Company Number: US-009507513-1207USA007218

PATIENT
  Age: 53 None
  Sex: Male

DRUGS (9)
  1. VICTRELIS [Suspect]
     Indication: HEPATITIS C
     Dosage: UNK
     Dates: start: 20111201, end: 20120208
  2. VICTRELIS [Suspect]
     Dosage: 800 mg, tid
     Route: 048
     Dates: start: 20120104
  3. PEGASYS [Suspect]
     Indication: HEPATITIS C
     Dosage: UNK
     Route: 058
     Dates: start: 20111201, end: 20120208
  4. REBETOL [Suspect]
     Indication: HEPATITIS C
     Dosage: UNK
     Route: 048
     Dates: start: 20110401, end: 20110701
  5. REBETOL [Suspect]
     Dosage: UNK
     Route: 048
     Dates: start: 20111201, end: 20120208
  6. REBETOL [Suspect]
     Dosage: UNK
     Route: 048
     Dates: start: 20120831, end: 20121012
  7. PEGINTRON [Suspect]
     Indication: HEPATITIS C
     Dosage: UNK
     Route: 058
     Dates: start: 20110401, end: 20110701
  8. PEGINTRON [Suspect]
     Dosage: UNK
     Dates: start: 20120831, end: 20121012
  9. TELAPREVIR [Concomitant]

REACTIONS (6)
  - Dysuria [Recovered/Resolved]
  - Renal failure [Recovered/Resolved]
  - Renal failure [Recovered/Resolved]
  - Abdominal discomfort [Recovered/Resolved]
  - Therapeutic response decreased [Unknown]
  - Therapeutic response decreased [Unknown]
